FAERS Safety Report 5149513-8 (Version None)
Quarter: 2006Q4

REPORT INFORMATION
  Report Type: 
  Country: None (occurrence: None)
  Receive Date: 20061113
  Receipt Date: 20060302
  Transmission Date: 20070319
  Serious: No
  Sender: FDA-Public Use
  Company Number: US-GLAXOSMITHKLINE-A0595882A

PATIENT
  Age: 85 Year
  Sex: Female

DRUGS (3)
  1. COREG [Suspect]
     Indication: HYPERTENSION
     Dosage: 25MG TWICE PER DAY
     Route: 048
     Dates: start: 20030101
  2. BENICAR [Concomitant]
     Dates: end: 20060201
  3. AVALIDE [Concomitant]

REACTIONS (1)
  - MYALGIA [None]
